FAERS Safety Report 10453468 (Version 1)
Quarter: 2014Q3

REPORT INFORMATION
  Report Type: Spontaneous
  Country: US (occurrence: US)
  Receive Date: 20140915
  Receipt Date: 20140915
  Transmission Date: 20150326
  Serious: No
  Sender: FDA-Public Use
  Company Number: US-GE HEALTHCARE MEDICAL DIAGNOSTICS-INDT-PR-1406S-0002

PATIENT
  Age: 60 Year
  Sex: Male

DRUGS (2)
  1. INDIUM DTPA IN 111 [Suspect]
     Active Substance: INDIUM IN-111 PENTETATE DISODIUM
     Indication: HYDROCEPHALUS
     Route: 008
     Dates: start: 201406, end: 201406
  2. INDIUM DTPA IN 111 [Suspect]
     Active Substance: INDIUM IN-111 PENTETATE DISODIUM
     Indication: DIAGNOSTIC PROCEDURE
     Route: 008
     Dates: start: 20140604, end: 20140604

REACTIONS (2)
  - Drug ineffective [Unknown]
  - No adverse event [None]

NARRATIVE: CASE EVENT DATE: 20140604
